FAERS Safety Report 23507402 (Version 1)
Quarter: 2024Q1

REPORT INFORMATION
  Report Type: Spontaneous
  Country: US (occurrence: US)
  Receive Date: 20240209
  Receipt Date: 20240209
  Transmission Date: 20240409
  Serious: No
  Sender: FDA-Public Use
  Company Number: US-SA-SAC20240203000327

PATIENT
  Age: 21 Year
  Sex: Female

DRUGS (1)
  1. DUPIXENT [Suspect]
     Active Substance: DUPILUMAB
     Indication: Dermatitis atopic
     Dosage: DOSE -300MG FREQUENCY -EVERY 2 WEEKS
     Route: 058
     Dates: start: 202306

REACTIONS (2)
  - Injection site pruritus [Recovered/Resolved]
  - Injection site swelling [Unknown]
